FAERS Safety Report 8883298 (Version 1)
Quarter: 2012Q4

REPORT INFORMATION
  Report Type: 
  Country: GB (occurrence: GB)
  Receive Date: 20121102
  Receipt Date: 20121102
  Transmission Date: 20130627
  Serious: Yes (Other)
  Sender: FDA-Public Use
  Company Number: GB-ASTRAZENECA-2012SE81521

PATIENT
  Age: 55 Year
  Sex: Female

DRUGS (3)
  1. PROPOFOL [Suspect]
     Indication: INDUCTION OF ANAESTHESIA
     Route: 042
  2. FENTANYL [Suspect]
     Indication: INDUCTION OF ANAESTHESIA
  3. ATRACURIUM [Suspect]
     Indication: INDUCTION OF ANAESTHESIA

REACTIONS (1)
  - Stress cardiomyopathy [Recovered/Resolved]
